FAERS Safety Report 25529225 (Version 1)
Quarter: 2025Q3

REPORT INFORMATION
  Report Type: Spontaneous
  Country: EG (occurrence: None)
  Receive Date: 20250708
  Receipt Date: 20250708
  Transmission Date: 20251021
  Serious: Yes (Life-Threatening, Disabling, Other)
  Sender: FDA-CTU
  Company Number: None

PATIENT
  Age: 37 Year
  Sex: Male
  Weight: 130 kg

DRUGS (2)
  1. RISPERIDONE [Suspect]
     Active Substance: RISPERIDONE
     Indication: Bipolar disorder
  2. RISPERIDONE [Suspect]
     Active Substance: RISPERIDONE
     Indication: Depression

REACTIONS (16)
  - Libido disorder [None]
  - Erectile dysfunction [None]
  - Semen volume decreased [None]
  - Psychotic symptom [None]
  - Hyperphagia [None]
  - Blood cholesterol increased [None]
  - Obesity [None]
  - Diabetes mellitus [None]
  - Hypertension [None]
  - Condition aggravated [None]
  - Stubbornness [None]
  - Anger [None]
  - Self esteem decreased [None]
  - Decreased interest [None]
  - Mood altered [None]
  - Abnormal behaviour [None]

NARRATIVE: CASE EVENT DATE: 20160101
